FAERS Safety Report 8360553-8 (Version None)
Quarter: 2012Q2

REPORT INFORMATION
  Report Type: 
  Country: None (occurrence: None)
  Receive Date: 20120515
  Receipt Date: 20120507
  Transmission Date: 20120825
  Serious: Yes (Other)
  Sender: FDA-Public Use
  Company Number: PHEH2012US003531

PATIENT
  Sex: Female
  Weight: 12.837 kg

DRUGS (9)
  1. AFINITOR [Suspect]
     Indication: TUBEROUS SCLEROSIS
     Dosage: 5 MG QD
     Route: 048
  2. AFINITOR [Suspect]
     Dosage: 2.5 MG, DAILY
     Route: 048
  3. LAMOTRIGINE [Concomitant]
     Dosage: UNK
  4. AFINITOR [Suspect]
     Indication: ASTROCYTOMA, LOW GRADE
     Dosage: 2.5 MG, DAILY
     Route: 048
     Dates: start: 20120121
  5. KEPPRA [Concomitant]
     Indication: TUBEROUS SCLEROSIS
  6. VITAMIN [Concomitant]
     Dosage: UNK
  7. MELATONIN [Concomitant]
     Indication: RESTLESSNESS
     Dosage: 3 MG, QHS
     Route: 048
  8. MELATONIN [Concomitant]
     Indication: INSOMNIA
  9. KEPPRA [Concomitant]
     Indication: EPILEPSY
     Dosage: 0.5 DF, BID
     Route: 048

REACTIONS (5)
  - NEPHROLITHIASIS [None]
  - CONVULSION [None]
  - STOMATITIS [None]
  - COGNITIVE DISORDER [None]
  - EAR INFECTION [None]
